FAERS Safety Report 19012573 (Version 1)
Quarter: 2021Q1

REPORT INFORMATION
  Report Type: Spontaneous
  Country: SE (occurrence: SE)
  Receive Date: 20210316
  Receipt Date: 20210316
  Transmission Date: 20210420
  Serious: Yes (Other)
  Sender: FDA-Public Use
  Company Number: SE-ASTRAZENECA-2021A131029

PATIENT
  Age: 68 Year
  Sex: Female

DRUGS (2)
  1. LYNPARZA [Suspect]
     Active Substance: OLAPARIB
     Indication: OVARIAN CANCER STAGE III
     Route: 048
     Dates: start: 20161222, end: 20210208
  2. LYNPARZA [Suspect]
     Active Substance: OLAPARIB
     Indication: OVARIAN CANCER STAGE III
     Route: 048
     Dates: start: 20161109

REACTIONS (2)
  - Acute myeloid leukaemia [Unknown]
  - Anaemia [Unknown]

NARRATIVE: CASE EVENT DATE: 202102
